FAERS Safety Report 15587940 (Version 2)
Quarter: 2018Q4

REPORT INFORMATION
  Report Type: Report from Study
  Country: None (occurrence: US)
  Receive Date: 20181105
  Receipt Date: 20181217
  Transmission Date: 20190205
  Serious: Yes (Other)
  Sender: FDA-Public Use
  Company Number: US-VIFOR (INTERNATIONAL) INC.-VIT-2017-09224

PATIENT
  Age: 45 Year
  Sex: Female
  Weight: 96.7 kg

DRUGS (30)
  1. TRAVATAN Z [Concomitant]
     Active Substance: TRAVOPROST
  2. HUMALOG [Concomitant]
     Active Substance: INSULIN LISPRO
  3. METOPROLOL. [Concomitant]
     Active Substance: METOPROLOL
  4. OFLOXACIN. [Concomitant]
     Active Substance: OFLOXACIN
  5. LEVEMIR [Concomitant]
     Active Substance: INSULIN DETEMIR
  6. LISINOPRIL. [Concomitant]
     Active Substance: LISINOPRIL
  7. IRON [Concomitant]
     Active Substance: IRON
  8. BENZONATATE. [Concomitant]
     Active Substance: BENZONATATE
  9. FENOFIBRATE. [Concomitant]
     Active Substance: FENOFIBRATE
  10. VELTASSA [Suspect]
     Active Substance: PATIROMER
     Indication: HYPERKALAEMIA
     Route: 048
     Dates: start: 20170831
  11. VELTASSA [Suspect]
     Active Substance: PATIROMER
  12. LOSARTAN POTASSIUM. [Concomitant]
     Active Substance: LOSARTAN POTASSIUM
  13. VITAMIN D [Concomitant]
     Active Substance: CHOLECALCIFEROL
  14. METFORMIN [Concomitant]
     Active Substance: METFORMIN HYDROCHLORIDE
  15. VITAMIN D3 [Concomitant]
     Active Substance: CHOLECALCIFEROL
  16. KETOROLAC [Concomitant]
     Active Substance: KETOROLAC\KETOROLAC TROMETHAMINE
  17. HYDRALAZINE [Concomitant]
     Active Substance: HYDRALAZINE HYDROCHLORIDE
  18. ATORVASTATIN [Concomitant]
     Active Substance: ATORVASTATIN
  19. SODIUM POLYSTYRENE SULFONATE. [Concomitant]
     Active Substance: SODIUM POLYSTYRENE SULFONATE
  20. PREDNISOLONE. [Concomitant]
     Active Substance: PREDNISOLONE
  21. LATANOPROST. [Concomitant]
     Active Substance: LATANOPROST
  22. PRED FORTE [Concomitant]
     Active Substance: PREDNISOLONE ACETATE
  23. SODIUM BICARBONATE. [Concomitant]
     Active Substance: SODIUM BICARBONATE
  24. FERROUS SULFATE. [Concomitant]
     Active Substance: FERROUS SULFATE
  25. AMLODIPINE [Concomitant]
     Active Substance: AMLODIPINE BESYLATE
  26. PROMETHAZINE [Concomitant]
     Active Substance: PROMETHAZINE\PROMETHAZINE HYDROCHLORIDE
  27. BYDUREON [Concomitant]
     Active Substance: EXENATIDE
  28. LIPITOR [Concomitant]
     Active Substance: ATORVASTATIN CALCIUM
  29. CIPRO OPTH [Concomitant]
  30. FEROSUL [Concomitant]

REACTIONS (8)
  - Fatigue [Not Recovered/Not Resolved]
  - Nausea [Not Recovered/Not Resolved]
  - Product dose omission [Not Recovered/Not Resolved]
  - Muscle spasms [Not Recovered/Not Resolved]
  - Nausea [Recovered/Resolved]
  - Constipation [Not Recovered/Not Resolved]
  - Diarrhoea [Not Recovered/Not Resolved]
  - Cataract [Not Recovered/Not Resolved]

NARRATIVE: CASE EVENT DATE: 201707
